FAERS Safety Report 19778923 (Version 1)
Quarter: 2021Q3

REPORT INFORMATION
  Report Type: Spontaneous
  Country: US (occurrence: US)
  Receive Date: 20210902
  Receipt Date: 20210902
  Transmission Date: 20211014
  Serious: Yes (Other)
  Sender: FDA-Public Use
  Company Number: US-EYEVANCE PHARMACEUTICALS-2021EYE00091

PATIENT
  Sex: Female

DRUGS (2)
  1. FRESHKOTE [Suspect]
     Active Substance: POLYVINYL ALCOHOL\POVIDONE
     Dosage: UNK, 1X/DAY
  2. FRESHKOTE [Suspect]
     Active Substance: POLYVINYL ALCOHOL\POVIDONE
     Dosage: UNK, 2X/DAY MORNING AND NIGHT

REACTIONS (1)
  - Eye infection [Not Recovered/Not Resolved]
